FAERS Safety Report 7001013-6 (Version None)
Quarter: 2010Q3

REPORT INFORMATION
  Report Type: 
  Country: None (occurrence: None)
  Receive Date: 20100920
  Receipt Date: 20100723
  Transmission Date: 20110219
  Serious: No
  Sender: FDA-Public Use
  Company Number: US-ASTRAZENECA-2009UW14924

PATIENT
  Age: 54 Year
  Sex: Male
  Weight: 104.3 kg

DRUGS (11)
  1. SEROQUEL [Suspect]
     Indication: SCHIZOPHRENIA
     Dosage: 100-300 MG
     Route: 048
     Dates: start: 20010101
  2. SEROQUEL [Suspect]
     Indication: INSOMNIA
     Dosage: 100-300 MG
     Route: 048
     Dates: start: 20010101
  3. ABILIFY [Concomitant]
     Dates: start: 20040101, end: 20050101
  4. GEODON [Concomitant]
     Dates: start: 20040101
  5. THORAZINE [Concomitant]
     Dates: start: 19880101, end: 19900101
  6. TRILAFON [Concomitant]
     Dates: start: 19750101, end: 19850101
  7. TRIAVIL [Concomitant]
     Dates: start: 19750101, end: 19850101
  8. ZOLOFT [Concomitant]
     Dates: start: 20070101
  9. REMERON [Concomitant]
     Dates: start: 20090101
  10. LUDIOMIL [Concomitant]
     Dates: start: 20090101
  11. METOPROLOL [Concomitant]
     Indication: HYPERTENSION
     Dates: start: 20070101

REACTIONS (7)
  - BLOOD CHOLESTEROL INCREASED [None]
  - BLOOD TRIGLYCERIDES INCREASED [None]
  - HYPERLIPIDAEMIA [None]
  - HYPERTENSION [None]
  - OBESITY [None]
  - TYPE 2 DIABETES MELLITUS [None]
  - WEIGHT INCREASED [None]
